FAERS Safety Report 9840075 (Version 3)
Quarter: 2014Q1

REPORT INFORMATION
  Report Type: Spontaneous
  Country: DE (occurrence: DE)
  Receive Date: 20140124
  Receipt Date: 20140220
  Transmission Date: 20141002
  Serious: Yes (Hospitalization)
  Sender: FDA-Public Use
  Company Number: DE-SHIRE-ALL1-2014-00477

PATIENT
  Age: 67 Year
  Sex: Female
  Weight: 50 kg

DRUGS (5)
  1. XAGRID [Suspect]
     Indication: ESSENTIAL THROMBOCYTHAEMIA
     Dosage: 1.0 TO 2.5 MG, OTHER (PER DAY)
     Route: 048
     Dates: start: 20130428
  2. ASS [Concomitant]
     Indication: THROMBOCYTOSIS
     Dosage: 100 MG, UNKNOWN
     Route: 048
  3. AMITRIPTYLIN [Concomitant]
     Indication: DEPRESSED MOOD
     Dosage: 25 MG, UNKNOWN
     Route: 048
  4. METOPROLOL [Concomitant]
     Indication: HYPERTENSION
     Dosage: 100 MG, UNKNOWN
     Route: 048
  5. ENALAPRIL [Concomitant]
     Indication: HYPERTENSION
     Dosage: 20 MG, UNKNOWN
     Route: 048

REACTIONS (2)
  - Embolic stroke [Recovered/Resolved with Sequelae]
  - Clavicle fracture [Unknown]
